FAERS Safety Report 4790139-3 (Version None)
Quarter: 2005Q4

REPORT INFORMATION
  Report Type: 
  Country: None (occurrence: None)
  Receive Date: 20051005
  Receipt Date: 20051005
  Transmission Date: 20060501
  Serious: Yes (Hospitalization)
  Sender: FDA-Public Use
  Company Number: None

PATIENT
  Sex: Female

DRUGS (3)
  1. WARFARIN [Suspect]
     Indication: PROPHYLAXIS
     Dosage: 3MG/5MG PO
     Route: 048
  2. WARFARIN [Suspect]
     Indication: PULMONARY OEDEMA
     Dosage: 3MG/5MG PO
     Route: 048
  3. WARFARIN [Suspect]
     Indication: THROMBOSIS PROPHYLAXIS
     Dosage: 3MG/5MG PO
     Route: 048

REACTIONS (6)
  - DEEP VEIN THROMBOSIS [None]
  - FEELING ABNORMAL [None]
  - INTERNATIONAL NORMALISED RATIO INCREASED [None]
  - MALAISE [None]
  - ORAL INTAKE REDUCED [None]
  - PULMONARY EMBOLISM [None]
